FAERS Safety Report 4637670-9 (Version None)
Quarter: 2005Q2

REPORT INFORMATION
  Report Type: 
  Country: None (occurrence: None)
  Receive Date: 20050328
  Receipt Date: 20041210
  Transmission Date: 20051028
  Serious: No
  Sender: FDA-Public Use
  Company Number: USA041285928

PATIENT
  Age: 10 Year
  Sex: Male
  Weight: 58 kg

DRUGS (1)
  1. STRATTERA [Suspect]
     Dosage: 50 MG DAY
     Dates: start: 20041209

REACTIONS (5)
  - CRYING [None]
  - DRY MOUTH [None]
  - DYSPHAGIA [None]
  - DYSPNOEA [None]
  - EMOTIONAL DISTRESS [None]
